FAERS Safety Report 9321197 (Version 2)
Quarter: 2013Q3

REPORT INFORMATION
  Report Type: Spontaneous
  Country: US (occurrence: US)
  Receive Date: 20130531
  Receipt Date: 20130702
  Transmission Date: 20140515
  Serious: Yes (Other)
  Sender: FDA-Public Use
  Company Number: US-PERRIGO-13US005683

PATIENT
  Age: 62 Year
  Sex: Female

DRUGS (8)
  1. ACETAMINOPHEN-ASPIRIN-CAFFEINE 6X0 [Suspect]
     Indication: SPINAL OSTEOARTHRITIS
     Dosage: 8 TO 10 DAILY
     Route: 048
     Dates: start: 201210, end: 20130228
  2. ACETAMINOPHEN-ASPIRIN-CAFFEINE 6X0 [Suspect]
     Indication: TENSION HEADACHE
  3. CRESTOR [Concomitant]
     Indication: BLOOD CHOLESTEROL
     Dosage: UNK
     Route: 065
     Dates: start: 2007
  4. BENICAR [Concomitant]
     Indication: BLOOD PRESSURE
     Dosage: UNK
     Route: 065
     Dates: start: 2008
  5. NEXIUM [Concomitant]
     Indication: DYSPEPSIA
     Dosage: UNK
     Route: 065
     Dates: start: 2003
  6. NEXIUM [Concomitant]
     Indication: PROPHYLAXIS
  7. EXCEDRIN ES [Suspect]
     Indication: SPINAL OSTEOARTHRITIS
     Dosage: UNK
     Route: 048
     Dates: start: 1988, end: 201210
  8. EXCEDRIN ES [Suspect]
     Indication: TENSION HEADACHE

REACTIONS (5)
  - Cerebrovascular accident [Recovered/Resolved]
  - Overdose [Recovered/Resolved]
  - Dependence [Recovered/Resolved]
  - Incorrect drug administration duration [Recovered/Resolved]
  - Therapeutic response unexpected [Unknown]
